FAERS Safety Report 8767291 (Version 2)
Quarter: 2012Q4

REPORT INFORMATION
  Report Type: 
  Country: JP (occurrence: JP)
  Receive Date: 20120904
  Receipt Date: 20120918
  Transmission Date: 20130627
  Serious: Yes (Hospitalization)
  Sender: FDA-Public Use
  Company Number: JP-GLAXOSMITHKLINE-B0827237A

PATIENT
  Age: 29 Year
  Sex: Female
  Weight: 54 kg

DRUGS (9)
  1. LAMICTAL [Suspect]
     Indication: BIPOLAR DISORDER
     Dosage: 25MG Per day
     Route: 048
     Dates: start: 20120630, end: 20120711
  2. LIMAS [Concomitant]
     Indication: BIPOLAR DISORDER
     Route: 048
     Dates: start: 20100105
  3. ABILIFY [Concomitant]
     Indication: BIPOLAR DISORDER
     Dosage: 3MG Per day
     Route: 048
     Dates: start: 20091017
  4. TASMOLIN [Concomitant]
     Indication: BIPOLAR DISORDER
     Dosage: 1MG Per day
     Route: 048
     Dates: start: 20091017
  5. MEILAX [Concomitant]
     Indication: BIPOLAR DISORDER
     Dosage: .5MG Per day
     Route: 048
     Dates: start: 20110509
  6. LENDORMIN [Concomitant]
     Indication: BIPOLAR DISORDER
     Dosage: .25MG Per day
     Route: 048
     Dates: start: 20090203
  7. DEPAS [Concomitant]
     Indication: BIPOLAR DISORDER
     Dosage: 1MG Per day
     Route: 048
     Dates: start: 20090203
  8. RESLIN [Concomitant]
     Indication: BIPOLAR DISORDER
     Dosage: 25MG Per day
     Route: 048
     Dates: start: 20090801
  9. SEROQUEL [Concomitant]
     Indication: INSOMNIA
     Route: 048

REACTIONS (11)
  - Pyrexia [Recovered/Resolved]
  - Rash [Recovered/Resolved]
  - Lymphadenopathy [Recovered/Resolved]
  - Hepatic function abnormal [Recovered/Resolved]
  - Disseminated intravascular coagulation [Recovered/Resolved]
  - Oropharyngeal pain [Unknown]
  - Viral infection [Unknown]
  - Still^s disease adult onset [Unknown]
  - Histiocytosis haematophagic [Unknown]
  - General physical health deterioration [Unknown]
  - Drug reaction with eosinophilia and systemic symptoms [Recovered/Resolved]
